FAERS Safety Report 21272789 (Version 1)
Quarter: 2022Q3

REPORT INFORMATION
  Report Type: Spontaneous
  Country: ES (occurrence: ES)
  Receive Date: 20220831
  Receipt Date: 20220831
  Transmission Date: 20221027
  Serious: Yes (Other)
  Sender: FDA-Public Use
  Company Number: ES-BAYER-2022P012233

PATIENT
  Sex: Male

DRUGS (1)
  1. EYLEA [Suspect]
     Active Substance: AFLIBERCEPT
     Indication: Product used for unknown indication
     Dosage: 1 DF, ONCE, RIGHT EYE; SOLUTION FOR INJECTION
     Route: 031
     Dates: start: 20220726, end: 20220726

REACTIONS (3)
  - Blindness [Unknown]
  - Retinal ischaemia [Unknown]
  - Ocular vasculitis [Unknown]

NARRATIVE: CASE EVENT DATE: 20220729
